FAERS Safety Report 19509796 (Version 2)
Quarter: 2021Q3

REPORT INFORMATION
  Report Type: Report from Study
  Country: CN (occurrence: CN)
  Receive Date: 20210708
  Receipt Date: 20210719
  Transmission Date: 20211014
  Serious: Yes (Hospitalization)
  Sender: FDA-Public Use
  Company Number: CN-PFIZER INC-2021831522

PATIENT
  Age: 67 Year
  Sex: Female
  Weight: 48.4 kg

DRUGS (14)
  1. LEVOFLOXACIN. [Suspect]
     Active Substance: LEVOFLOXACIN
     Indication: INFECTION
     Dosage: 0.5 G, 1X/DAY
     Route: 048
     Dates: start: 20210604, end: 20210609
  2. PEMETREXED DISODIUM [Concomitant]
     Active Substance: PEMETREXED DISODIUM
     Dosage: 730 MG, 500 MG/M2, EVERY 3 WEEKS
     Route: 041
  3. PEMETREXED DISODIUM [Concomitant]
     Active Substance: PEMETREXED DISODIUM
     Dosage: 730 MG, 500 MG/M2, EVERY 3 WEEKS
     Route: 041
     Dates: end: 20210423
  4. AMLODIPINE BESYLATE. [Concomitant]
     Active Substance: AMLODIPINE BESYLATE
     Indication: HYPERTENSION
     Dosage: 10 MG, 1X/DAY
     Route: 048
     Dates: start: 1990
  5. BLINDED THERAPY [Suspect]
     Active Substance: INVESTIGATIONAL PRODUCT
     Indication: LUNG ADENOCARCINOMA
     Dosage: EVERY 3 WEEKS,  HLX10/PLACEBO + HLX04/PLACEBO
     Dates: start: 20201218, end: 20210423
  6. HYDROCODONE HYDROCHLORIDE [Concomitant]
     Active Substance: HYDROCODONE HYDROCHLORIDE
     Indication: CANCER PAIN
     Dosage: 200 MG, 2X/DAY
     Route: 048
     Dates: start: 20210409
  7. LACTULOSE. [Concomitant]
     Active Substance: LACTULOSE
     Indication: CONSTIPATION
     Dosage: 15 ML, 3X/DAY,
     Route: 048
     Dates: start: 20210422
  8. LYRICA [Concomitant]
     Active Substance: PREGABALIN
     Indication: CANCER PAIN
     Dosage: 75 MG, 3X/DAY
     Route: 048
     Dates: start: 20210214
  9. CELECOXIB. [Concomitant]
     Active Substance: CELECOXIB
     Indication: CANCER PAIN
     Dosage: 0.2 G, 2X/DAY
     Route: 048
     Dates: start: 20210214
  10. ONDANSETRON HYDROCHLORIDE. [Concomitant]
     Active Substance: ONDANSETRON HYDROCHLORIDE
     Indication: ANTIEMETIC SUPPORTIVE CARE
     Dosage: 8 MG, AS NEEDED
     Route: 048
     Dates: start: 20210409
  11. GABAPENTIN. [Suspect]
     Active Substance: GABAPENTIN
     Indication: CANCER PAIN
     Dosage: CAPSULE
     Dates: start: 202104, end: 20210605
  12. OXYCODONE [Concomitant]
     Active Substance: OXYCODONE
     Indication: CANCER PAIN
     Dosage: 5 MG
     Route: 048
     Dates: start: 20201204
  13. PEMETREXED DISODIUM [Concomitant]
     Active Substance: PEMETREXED DISODIUM
     Dosage: 730 MG, 500 MG/M2, EVERY 3 WEEKS
     Route: 041
     Dates: start: 20201218
  14. CARBOPLATIN. [Concomitant]
     Active Substance: CARBOPLATIN
     Dosage: 600 MG, AUC = 5, EVERY 3 WEEKS
     Dates: start: 20201228, end: 20210219

REACTIONS (1)
  - Immune-mediated encephalitis [Not Recovered/Not Resolved]

NARRATIVE: CASE EVENT DATE: 20210608
